FAERS Safety Report 21289450 (Version 6)
Quarter: 2023Q4

REPORT INFORMATION
  Report Type: Report from Study
  Country: FR (occurrence: FR)
  Receive Date: 20220902
  Receipt Date: 20231120
  Transmission Date: 20240109
  Serious: Yes (Hospitalization)
  Sender: FDA-Public Use
  Company Number: FR-PFIZER INC-202200455663

PATIENT
  Age: 78 Year
  Sex: Male
  Weight: 92 kg

DRUGS (33)
  1. AVELUMAB [Suspect]
     Active Substance: AVELUMAB
     Indication: Product used for unknown indication
     Dates: start: 20201005, end: 20201214
  2. AVELUMAB [Suspect]
     Active Substance: AVELUMAB
  3. KARDEGIC [Concomitant]
     Active Substance: ASPIRIN DL-LYSINE
     Indication: Product used for unknown indication
     Route: 048
  4. KARDEGIC [Concomitant]
     Active Substance: ASPIRIN DL-LYSINE
  5. KARDEGIC [Concomitant]
     Active Substance: ASPIRIN DL-LYSINE
  6. LANSOPRAZOLE [Concomitant]
     Active Substance: LANSOPRAZOLE
     Indication: Product used for unknown indication
     Route: 048
  7. LANSOPRAZOLE [Concomitant]
     Active Substance: LANSOPRAZOLE
  8. LANSOPRAZOLE [Concomitant]
     Active Substance: LANSOPRAZOLE
  9. SITAGLIPTIN [Concomitant]
     Active Substance: SITAGLIPTIN
     Indication: Diabetes mellitus
     Route: 048
  10. SITAGLIPTIN [Concomitant]
     Active Substance: SITAGLIPTIN
  11. SITAGLIPTIN [Concomitant]
     Active Substance: SITAGLIPTIN
  12. METFORMIN HYDROCHLORIDE [Concomitant]
     Active Substance: METFORMIN HYDROCHLORIDE
     Indication: Diabetes mellitus
     Route: 048
  13. METFORMIN HYDROCHLORIDE [Concomitant]
     Active Substance: METFORMIN HYDROCHLORIDE
  14. METFORMIN HYDROCHLORIDE [Concomitant]
     Active Substance: METFORMIN HYDROCHLORIDE
  15. LIDOCAINE [Concomitant]
     Active Substance: LIDOCAINE
     Indication: Pain
     Route: 003
  16. LIDOCAINE [Concomitant]
     Active Substance: LIDOCAINE
  17. LIDOCAINE [Concomitant]
     Active Substance: LIDOCAINE
  18. LERCANIDIPINE [Concomitant]
     Active Substance: LERCANIDIPINE
     Indication: Arterial disorder
     Route: 048
  19. LERCANIDIPINE [Concomitant]
     Active Substance: LERCANIDIPINE
  20. RAMIPRIL [Concomitant]
     Active Substance: RAMIPRIL
     Indication: Arterial disorder
     Route: 048
  21. RAMIPRIL [Concomitant]
     Active Substance: RAMIPRIL
  22. ALPRAZOLAM [Concomitant]
     Active Substance: ALPRAZOLAM
     Indication: Depression
     Route: 048
  23. ALPRAZOLAM [Concomitant]
     Active Substance: ALPRAZOLAM
  24. VENLAFAXINE [Concomitant]
     Active Substance: VENLAFAXINE HYDROCHLORIDE
     Indication: Depression
     Route: 048
  25. VENLAFAXINE [Concomitant]
     Active Substance: VENLAFAXINE HYDROCHLORIDE
  26. OXYCODONE [Concomitant]
     Active Substance: OXYCODONE
     Indication: Pain
     Route: 048
  27. OXYCODONE [Concomitant]
     Active Substance: OXYCODONE
  28. PREGABALIN [Concomitant]
     Active Substance: PREGABALIN
     Indication: Depression
     Route: 048
  29. PREGABALIN [Concomitant]
     Active Substance: PREGABALIN
  30. ACETAMINOPHEN [Concomitant]
     Active Substance: ACETAMINOPHEN
     Indication: Pain
     Route: 048
  31. ACETAMINOPHEN [Concomitant]
     Active Substance: ACETAMINOPHEN
  32. POLYETHYLENE GLYCOLS [Concomitant]
     Active Substance: POLYETHYLENE GLYCOLS
     Indication: Constipation
     Route: 048
  33. POLYETHYLENE GLYCOLS [Concomitant]
     Active Substance: POLYETHYLENE GLYCOLS

REACTIONS (2)
  - Hyperthermia [Recovered/Resolved]
  - Acute kidney injury [Recovered/Resolved]

NARRATIVE: CASE EVENT DATE: 20201117
